FAERS Safety Report 20562379 (Version 2)
Quarter: 2022Q1

REPORT INFORMATION
  Report Type: Report from Study
  Country: FR (occurrence: FR)
  Receive Date: 20220307
  Receipt Date: 20220323
  Transmission Date: 20220423
  Serious: Yes (Hospitalization, Other)
  Sender: FDA-Public Use
  Company Number: FR-BRISTOL-MYERS SQUIBB COMPANY-BMS-2022-030765

PATIENT
  Age: 58 Year
  Sex: Female
  Weight: 40.8 kg

DRUGS (3)
  1. NIVOLUMAB [Suspect]
     Active Substance: NIVOLUMAB
     Indication: Adenocarcinoma
     Dosage: 240 MILLIGRAM
     Route: 042
     Dates: start: 20220208
  2. SITRAVATINIB [Suspect]
     Active Substance: SITRAVATINIB
     Indication: Adenocarcinoma
     Dosage: 100 MILLIGRAM
     Route: 048
     Dates: start: 20220208
  3. NIVOLUMAB [Suspect]
     Active Substance: NIVOLUMAB
     Indication: Adenocarcinoma
     Dosage: 240 MILLIGRAM
     Route: 042
     Dates: start: 20220208

REACTIONS (1)
  - Congestive cardiomyopathy [Unknown]

NARRATIVE: CASE EVENT DATE: 20220222
